FAERS Safety Report 9845051 (Version 3)
Quarter: 2014Q1

REPORT INFORMATION
  Report Type: Spontaneous
  Country: US (occurrence: None)
  Receive Date: 20140122
  Receipt Date: 20140312
  Transmission Date: 20141002
  Serious: Yes (Hospitalization)
  Sender: FDA-Public Use
  Company Number: UTC-042520

PATIENT
  Age: 61 Year
  Sex: Female
  Weight: 76.8 kg

DRUGS (4)
  1. TYVASO [Suspect]
     Indication: PULMONARY ARTERIAL HYPERTENSION
     Dosage: 18-54 MCG (4 IN 1 D), INHALATION
     Route: 055
     Dates: start: 20131028
  2. ADCIRCA (TADALAFIL) [Concomitant]
  3. TRACLEER (BOSENTAN) [Concomitant]
  4. FLOLAN [Suspect]
     Indication: PULMONARY ARTERIAL HYPERTENSION
     Dosage: 19.976 UG/KG (0.0104 UG/KG, 1 IN 1 MIN), INTRAVENOUS
     Route: 041
     Dates: start: 20100113

REACTIONS (9)
  - Pneumonia [None]
  - Cardiac failure [None]
  - Overdose [None]
  - Confusional state [None]
  - Chest pain [None]
  - Catheter site related reaction [None]
  - Device dislocation [None]
  - Sensation of foreign body [None]
  - Nervousness [None]
